FAERS Safety Report 9749957 (Version 1)
Quarter: 2013Q4

REPORT INFORMATION
  Report Type: Spontaneous
  Country: FR (occurrence: FR)
  Receive Date: 20131212
  Receipt Date: 20131212
  Transmission Date: 20140711
  Serious: Yes (Death, Hospitalization)
  Sender: FDA-Public Use
  Company Number: PHHY2013FR144533

PATIENT
  Sex: Male
  Weight: 2.3 kg

DRUGS (4)
  1. NISISCO [Suspect]
     Dosage: (MATERNAL DOSE: 1 DF (160MG VALS AND 12.5MG HCTZ DAILY))
     Route: 064
  2. MEDIATENSYL [Suspect]
     Dosage: (MATERNAL DOSE: 2 DF (30MG DAILY))
     Route: 064
  3. SPIFEN [Suspect]
     Dosage: UNK UKN, UNK
     Route: 064
  4. MICROVAL [Concomitant]
     Indication: PREGNANCY ON CONTRACEPTIVE
     Dosage: UNK UKN, UNK
     Route: 064

REACTIONS (2)
  - Renal failure acute [Fatal]
  - Pulmonary hypoplasia [Fatal]
